FAERS Safety Report 13667374 (Version 1)
Quarter: 2017Q2

REPORT INFORMATION
  Report Type: Spontaneous
  Country: DE (occurrence: DE)
  Receive Date: 20170620
  Receipt Date: 20170620
  Transmission Date: 20170830
  Serious: Yes (Death, Hospitalization, Other)
  Sender: FDA-Public Use
  Company Number: DE-BRISTOL-MYERS SQUIBB COMPANY-BMS-2017-036328

PATIENT
  Age: 70 Year
  Sex: Female
  Weight: 70 kg

DRUGS (1)
  1. NIVOLUMAB [Suspect]
     Active Substance: NIVOLUMAB
     Indication: SQUAMOUS CELL CARCINOMA OF LUNG
     Dosage: UNK UNK, Q2WK
     Route: 065
     Dates: start: 20160920

REACTIONS (6)
  - Dysphonia [Not Recovered/Not Resolved]
  - Malignant neoplasm progression [Fatal]
  - Asthenia [Recovering/Resolving]
  - Autoimmune thyroiditis [Recovering/Resolving]
  - Hypothyroidism [Recovering/Resolving]
  - Neurological decompensation [Fatal]

NARRATIVE: CASE EVENT DATE: 201701
